FAERS Safety Report 22637735 (Version 1)
Quarter: 2023Q2

REPORT INFORMATION
  Report Type: Spontaneous
  Country: US (occurrence: US)
  Receive Date: 20230626
  Receipt Date: 20230626
  Transmission Date: 20230721
  Serious: No
  Sender: FDA-Public Use
  Company Number: US-AMGEN-USASP2023108866

PATIENT
  Age: 41 Year
  Sex: Female

DRUGS (6)
  1. OTEZLA [Suspect]
     Active Substance: APREMILAST
     Indication: Psoriasis
     Dosage: 30 MILLIGRAM, BID
     Route: 048
     Dates: start: 202305
  2. CLOBETASOL [Concomitant]
     Active Substance: CLOBETASOL
  3. MOMETASONE [Concomitant]
     Active Substance: MOMETASONE
  4. ONDANSETRON [Concomitant]
     Active Substance: ONDANSETRON
  5. DOXEPIN [Concomitant]
     Active Substance: DOXEPIN
  6. OLANZAPINE [Concomitant]
     Active Substance: OLANZAPINE

REACTIONS (3)
  - Diarrhoea [Not Recovered/Not Resolved]
  - Flatulence [Not Recovered/Not Resolved]
  - Fatigue [Not Recovered/Not Resolved]

NARRATIVE: CASE EVENT DATE: 20230602
